FAERS Safety Report 5883414-2 (Version None)
Quarter: 2008Q3

REPORT INFORMATION
  Report Type: 
  Country: None (occurrence: None)
  Receive Date: 20080915
  Receipt Date: 20080911
  Transmission Date: 20090109
  Serious: Yes (Other)
  Sender: FDA-Public Use
  Company Number: JP-BAYER-200811721BYL

PATIENT
  Age: 0 Hour
  Sex: Male
  Weight: 0.591 kg

DRUGS (2)
  1. ADALAT CC [Suspect]
     Indication: HYPERTENSION
     Dosage: TOTAL DAILY DOSE: 20 MG  UNIT DOSE: 10 MG
     Route: 048
  2. LABETALOL HYDROCHLORIDE [Concomitant]
     Indication: HYPERTENSION
     Route: 065

REACTIONS (6)
  - CAESAREAN SECTION [None]
  - DEVELOPMENTAL DELAY [None]
  - FOETAL GROWTH RETARDATION [None]
  - MATERNAL DRUGS AFFECTING FOETUS [None]
  - PREMATURE BABY [None]
  - UMBILICAL CORD VASCULAR DISORDER [None]
